FAERS Safety Report 14990173 (Version 1)
Quarter: 2018Q2

REPORT INFORMATION
  Report Type: Spontaneous
  Country: US (occurrence: US)
  Receive Date: 20180608
  Receipt Date: 20180608
  Transmission Date: 20180711
  Serious: No
  Sender: FDA-Public Use
  Company Number: US-ROCHE-2041152

PATIENT
  Age: 53 Year
  Sex: Female
  Weight: 99.88 kg

DRUGS (7)
  1. ENBREL [Concomitant]
     Active Substance: ETANERCEPT
  2. ACETAMINOPHEN W/OXYCODONE [Concomitant]
     Active Substance: ACETAMINOPHEN\OXYCODONE HYDROCHLORIDE
     Indication: PAIN
     Route: 065
     Dates: start: 20171225
  3. ACTEMRA [Suspect]
     Active Substance: TOCILIZUMAB
     Dosage: CURRENT
     Route: 058
     Dates: start: 20171211
  4. ACTEMRA [Suspect]
     Active Substance: TOCILIZUMAB
     Dosage: CURRENT
     Route: 058
     Dates: start: 20171101
  5. ACETAMINOPHEN W/OXYCODONE [Concomitant]
     Active Substance: ACETAMINOPHEN\OXYCODONE HYDROCHLORIDE
     Route: 065
     Dates: start: 20171229
  6. ACTEMRA [Suspect]
     Active Substance: TOCILIZUMAB
     Indication: PRODUCT USED FOR UNKNOWN INDICATION
     Route: 058
     Dates: start: 20171120, end: 20171211
  7. ACTEMRA [Suspect]
     Active Substance: TOCILIZUMAB
     Dosage: CURRENT
     Route: 058

REACTIONS (8)
  - Middle insomnia [Not Recovered/Not Resolved]
  - Peripheral swelling [Unknown]
  - Peripheral swelling [Not Recovered/Not Resolved]
  - Swelling [Not Recovered/Not Resolved]
  - Skin discolouration [Unknown]
  - Pain [Unknown]
  - Drug ineffective [Unknown]
  - Arthritis [Not Recovered/Not Resolved]

NARRATIVE: CASE EVENT DATE: 201801
